FAERS Safety Report 24362300 (Version 1)
Quarter: 2024Q3

REPORT INFORMATION
  Report Type: Spontaneous
  Country: US (occurrence: US)
  Receive Date: 20240925
  Receipt Date: 20240925
  Transmission Date: 20241016
  Serious: Yes (Other)
  Sender: PFIZER
  Company Number: US-PFIZER INC-202400261519

PATIENT
  Age: 31 Year
  Sex: Female

DRUGS (2)
  1. NURTEC ODT [Suspect]
     Active Substance: RIMEGEPANT SULFATE
     Indication: Migraine
     Dosage: 75 MG
     Dates: start: 20230401
  2. NURTEC ODT [Suspect]
     Active Substance: RIMEGEPANT SULFATE
     Dosage: TOOK IT EVERY OTHER DAY
     Dates: start: 202306

REACTIONS (13)
  - Hypertension [Recovering/Resolving]
  - Palpitations [Recovering/Resolving]
  - Musculoskeletal discomfort [Recovering/Resolving]
  - Discomfort [Recovering/Resolving]
  - Arthralgia [Recovering/Resolving]
  - Joint stiffness [Recovering/Resolving]
  - Pain in jaw [Recovering/Resolving]
  - Neck pain [Recovering/Resolving]
  - Musculoskeletal stiffness [Recovering/Resolving]
  - Pain in extremity [Recovering/Resolving]
  - Abdominal pain upper [Recovering/Resolving]
  - Gait disturbance [Recovering/Resolving]
  - Intentional product use issue [Unknown]

NARRATIVE: CASE EVENT DATE: 20230601
